FAERS Safety Report 14010258 (Version 1)
Quarter: 2017Q3

REPORT INFORMATION
  Report Type: Spontaneous
  Country: US (occurrence: US)
  Receive Date: 20170926
  Receipt Date: 20170926
  Transmission Date: 20171128
  Serious: No
  Sender: FDA-Public Use
  Company Number: US-009507513-1709USA010342

PATIENT
  Sex: Male

DRUGS (1)
  1. ASMANEX [Suspect]
     Active Substance: MOMETASONE FUROATE
     Indication: ASTHMA
     Dosage: 220 MICROGRAM, UNK
     Route: 048

REACTIONS (3)
  - Product container issue [Unknown]
  - Drug dose omission [Unknown]
  - Dyspnoea [Not Recovered/Not Resolved]
